FAERS Safety Report 6377530-9 (Version None)
Quarter: 2009Q3

REPORT INFORMATION
  Report Type: 
  Country: None (occurrence: None)
  Receive Date: 20090925
  Receipt Date: 20090922
  Transmission Date: 20100115
  Serious: Yes (Other)
  Sender: FDA-Public Use
  Company Number: CH-MERCK-0909CHE00013

PATIENT
  Age: 42 Year
  Sex: Female

DRUGS (11)
  1. PRIMAXIN [Suspect]
     Route: 042
     Dates: start: 20081218, end: 20081230
  2. DIFLUCAN [Suspect]
     Indication: INTERTRIGO CANDIDA
     Route: 048
     Dates: start: 20081114
  3. TEMODAL [Suspect]
     Indication: ASTROCYTOMA
     Route: 065
     Dates: start: 20081111, end: 20081209
  4. CLARITHROMYCIN [Suspect]
     Route: 042
     Dates: start: 20081218, end: 20081222
  5. BACTRIM DS [Suspect]
     Route: 048
     Dates: start: 20081111, end: 20081215
  6. OMEPRAZOLE MAGNESIUM [Suspect]
     Route: 048
     Dates: start: 20081215, end: 20081218
  7. ZOFRAN [Suspect]
     Route: 048
     Dates: start: 20080830, end: 20081211
  8. DEXAMETHASONE [Concomitant]
     Route: 065
  9. LYRICA [Concomitant]
     Route: 048
     Dates: start: 20081113
  10. NEXIUM [Concomitant]
     Route: 048
  11. ACETAMINOPHEN [Concomitant]
     Route: 048

REACTIONS (1)
  - LIVER INJURY [None]
